FAERS Safety Report 5554979-5 (Version None)
Quarter: 2007Q4

REPORT INFORMATION
  Report Type: 
  Country: None (occurrence: None)
  Receive Date: 20071213
  Receipt Date: 20071204
  Transmission Date: 20080405
  Serious: Yes (Other)
  Sender: FDA-Public Use
  Company Number: US-JNJFOC-20071201918

PATIENT
  Sex: Female
  Weight: 52.16 kg

DRUGS (2)
  1. TOPAMAX [Suspect]
     Indication: CONVULSION
     Route: 048
  2. TOPAMAX [Suspect]
     Indication: MIGRAINE PROPHYLAXIS
     Route: 048

REACTIONS (5)
  - ALOPECIA [None]
  - DISTURBANCE IN ATTENTION [None]
  - THYROID FUNCTION TEST ABNORMAL [None]
  - TREMOR [None]
  - WEIGHT DECREASED [None]
